FAERS Safety Report 19732609 (Version 1)
Quarter: 2021Q3

REPORT INFORMATION
  Report Type: Other
  Country: CA (occurrence: CA)
  Receive Date: 20210822
  Receipt Date: 20210822
  Transmission Date: 20211014
  Serious: Yes (Death)
  Sender: FDA-Public Use
  Company Number: CA-CELLTRION INC.-2021CA011119

PATIENT

DRUGS (15)
  1. ALDACTONE [Concomitant]
     Active Substance: SPIRONOLACTONE
  2. IRON [Concomitant]
     Active Substance: IRON
  3. PREDNISONE. [Concomitant]
     Active Substance: PREDNISONE
  4. BENADRYL [Concomitant]
     Active Substance: DIPHENHYDRAMINE HYDROCHLORIDE
     Route: 065
  5. SENNOSIDES. [Concomitant]
     Active Substance: SENNOSIDES
  6. POTASSIUM [Concomitant]
     Active Substance: POTASSIUM
  7. TYLENOL [Concomitant]
     Active Substance: ACETAMINOPHEN
     Route: 048
  8. FOLIC ACID. [Concomitant]
     Active Substance: FOLIC ACID
  9. PANTOPRAZOLE [Concomitant]
     Active Substance: PANTOPRAZOLE
  10. SOLU?MEDROL [Concomitant]
     Active Substance: METHYLPREDNISOLONE SODIUM SUCCINATE
     Dosage: 100 MILLIGRAM
     Route: 042
  11. CITALOPRAM [Concomitant]
     Active Substance: CITALOPRAM HYDROBROMIDE
  12. VITAMIN B1 [Concomitant]
     Active Substance: THIAMINE HYDROCHLORIDE
  13. RITUXIMAB (UNKNOWN) [Suspect]
     Active Substance: RITUXIMAB
     Indication: RHEUMATOID ARTHRITIS
     Dosage: 1000 MILLIGRAM, 1 EVERY 2 WEEKS
     Route: 042
  14. CETIRIZINE [Concomitant]
     Active Substance: CETIRIZINE HYDROCHLORIDE
     Dosage: 1 EVERY 1 DAYS
     Route: 065
  15. FUROSEMIDE. [Concomitant]
     Active Substance: FUROSEMIDE
     Route: 065

REACTIONS (1)
  - Death [Fatal]
